FAERS Safety Report 5105342-2 (Version None)
Quarter: 2006Q3

REPORT INFORMATION
  Report Type: 
  Country: None (occurrence: None)
  Receive Date: 20060731
  Receipt Date: 20050621
  Transmission Date: 20061208
  Serious: Yes (Death)
  Sender: FDA-Public Use
  Company Number: US-JNJFOC-20050405532

PATIENT
  Age: 82 Year
  Sex: Female
  Weight: 88.905 kg

DRUGS (6)
  1. RISPERDAL [Suspect]
     Indication: DEMENTIA
     Dosage: 0.5 MG, 2 IN 1 DAY, ORAL
     Route: 048
     Dates: start: 20020930, end: 20050322
  2. TRAZODONE (TRAZODONE) TABLETS [Concomitant]
  3. HYDROCODONE/APAP (VICODIN) TABLETS [Concomitant]
  4. NYSTATIN (NYSTATIN) POWDER [Concomitant]
  5. DURAGESIC-100 [Concomitant]
  6. ARICEPT [Concomitant]

REACTIONS (1)
  - CARDIO-RESPIRATORY ARREST [None]
